FAERS Safety Report 6951185-4 (Version None)
Quarter: 2010Q3

REPORT INFORMATION
  Report Type: 
  Country: None (occurrence: None)
  Receive Date: 20100828
  Receipt Date: 20100421
  Transmission Date: 20110219
  Serious: No
  Sender: FDA-Public Use
  Company Number: US-ABBOTT-10P-163-0632994-00

PATIENT
  Sex: Female
  Weight: 88.984 kg

DRUGS (18)
  1. NIASPAN [Suspect]
     Indication: BLOOD CHOLESTEROL INCREASED
     Dates: start: 20100316
  2. IBUPROFEN [Concomitant]
     Indication: FIBROMYALGIA
  3. CYMBALTA [Concomitant]
     Indication: SCHIZOAFFECTIVE DISORDER
  4. GEODON [Concomitant]
     Indication: SCHIZOAFFECTIVE DISORDER
  5. ELAVIL [Concomitant]
     Indication: FIBROMYALGIA
  6. NEURONTIN [Concomitant]
     Indication: FIBROMYALGIA
  7. NEURONTIN [Concomitant]
     Indication: NEUROPATHY PERIPHERAL
  8. BUSPAR [Concomitant]
     Indication: ANXIETY
  9. TEGRETOL [Concomitant]
     Indication: CONVULSION
  10. PLAVIX [Concomitant]
     Indication: CEREBROVASCULAR ACCIDENT
  11. LISINOPRIL [Concomitant]
     Indication: HYPERTENSION
  12. SYNTHROID [Concomitant]
     Indication: HYPOTHYROIDISM
  13. ZANTAC [Concomitant]
     Indication: DYSPEPSIA
  14. ZOCOR [Concomitant]
     Indication: BLOOD CHOLESTEROL INCREASED
  15. COLACE [Concomitant]
     Indication: CONSTIPATION
  16. CALCIUM [Concomitant]
     Indication: MINERAL SUPPLEMENTATION
  17. VITAMIN D [Concomitant]
     Indication: HYPOVITAMINOSIS
  18. MULTIPLE VITAMINS [Concomitant]
     Indication: VITAMIN SUPPLEMENTATION

REACTIONS (4)
  - FLUSHING [None]
  - PAIN OF SKIN [None]
  - PRURITUS [None]
  - SKIN BURNING SENSATION [None]
